FAERS Safety Report 5931214-7 (Version None)
Quarter: 2008Q4

REPORT INFORMATION
  Report Type: 
  Country: None (occurrence: None)
  Receive Date: 20081023
  Receipt Date: 20060511
  Transmission Date: 20090506
  Serious: Yes (Hospitalization, Other)
  Sender: FDA-Public Use
  Company Number: 2006AL002064

PATIENT
  Age: 70 Year
  Sex: Male

DRUGS (8)
  1. NAPROXEN [Suspect]
     Indication: NECK PAIN
     Dosage: 500 MG; BID; PO
     Route: 048
     Dates: end: 20060403
  2. ADALAT [Concomitant]
  3. BENDROFLUAZIDE [Concomitant]
  4. OMEPRAZOLE [Concomitant]
  5. ACETAMINOPHEN [Concomitant]
  6. CODEINE SUL TAB [Concomitant]
  7. SENNA [Concomitant]
  8. DOCUSATE [Concomitant]

REACTIONS (5)
  - BLOOD PRESSURE DECREASED [None]
  - DIZZINESS [None]
  - GASTRITIS [None]
  - HELICOBACTER PYLORI IDENTIFICATION TEST POSITIVE [None]
  - VOMITING [None]
